FAERS Safety Report 16023421 (Version 1)
Quarter: 2019Q1

REPORT INFORMATION
  Report Type: Spontaneous
  Country: US (occurrence: US)
  Receive Date: 20190301
  Receipt Date: 20190301
  Transmission Date: 20190418
  Serious: Yes (Other)
  Sender: FDA-Public Use
  Company Number: US-AKORN PHARMACEUTICALS-2019AKN00305

PATIENT
  Age: 32 Year
  Sex: Female
  Weight: 80 kg

DRUGS (7)
  1. MYORISAN [Suspect]
     Active Substance: ISOTRETINOIN
     Dosage: 40 MG, 2X/DAY
     Route: 048
     Dates: start: 201902
  2. ZOLOFT [Concomitant]
     Active Substance: SERTRALINE HYDROCHLORIDE
  3. SYNTHROID [Concomitant]
     Active Substance: LEVOTHYROXINE SODIUM
  4. MYORISAN [Suspect]
     Active Substance: ISOTRETINOIN
     Dosage: 40 MG 1X/DAY IN THE EVENING (WITH 20 MG IN THE MORNING FOR TOTAL DOSE OF 60 MG A DAY)40 MG, 1X/DAY
     Route: 048
     Dates: start: 201812, end: 201902
  5. LORAZEPAM. [Concomitant]
     Active Substance: LORAZEPAM
  6. MYORISAN [Suspect]
     Active Substance: ISOTRETINOIN
     Dosage: 20 MG, 1X/DAY IN THE MORNING (WITH 40 MG IN THE EVENING FOR TOTAL DOSE OF 60 MG A DAY)
     Route: 048
     Dates: start: 201812, end: 201902
  7. MYORISAN [Suspect]
     Active Substance: ISOTRETINOIN
     Indication: ACNE
     Dosage: 20 MG, 2X/DAY
     Route: 048
     Dates: start: 20181105, end: 201812

REACTIONS (1)
  - Hysterectomy [Recovered/Resolved]

NARRATIVE: CASE EVENT DATE: 201902
